FAERS Safety Report 5147147-2 (Version None)
Quarter: 2006Q4

REPORT INFORMATION
  Report Type: 
  Country: None (occurrence: None)
  Receive Date: 20061108
  Receipt Date: 20061108
  Transmission Date: 20070319
  Serious: Yes (Life-Threatening, Disabling)
  Sender: FDA-Public Use
  Company Number: None

PATIENT
  Age: 66 Year
  Sex: Female

DRUGS (4)
  1. PHOSPHOSODA FLAVOR NOT SPECIFIED [Suspect]
     Indication: COLONOSCOPY
     Dosage: 45 ML; BID;PO
     Route: 048
     Dates: start: 20060906
  2. HYDROCHLOROTHIAZIDE [Concomitant]
  3. RELAFEN [Concomitant]
  4. ENALAPRIL MALEATE [Concomitant]

REACTIONS (4)
  - BLOOD ALBUMIN DECREASED [None]
  - DIARRHOEA [None]
  - HAEMATOCRIT DECREASED [None]
  - RENAL FAILURE ACUTE [None]
